FAERS Safety Report 12081055 (Version 1)
Quarter: 2016Q1

REPORT INFORMATION
  Report Type: Spontaneous
  Country: US (occurrence: US)
  Receive Date: 20160216
  Receipt Date: 20160216
  Transmission Date: 20160526
  Serious: Yes (Other)
  Sender: FDA-Public Use
  Company Number: US-HQ SPECIALTY-US-2016INT000053

PATIENT
  Age: 47 Year
  Sex: Female

DRUGS (2)
  1. CISPLATIN. [Suspect]
     Active Substance: CISPLATIN
     Indication: SMALL CELL LUNG CANCER
     Dosage: UNK, 4 CYCLES
  2. ETOPOSIDE. [Suspect]
     Active Substance: ETOPOSIDE
     Indication: SMALL CELL LUNG CANCER
     Dosage: UNK, 4 CYCLES

REACTIONS (9)
  - Tachycardia [Unknown]
  - Dysphagia [Unknown]
  - Cough [Unknown]
  - Nausea [Unknown]
  - Pyrexia [Unknown]
  - Oesophageal ulcer [Unknown]
  - Vomiting [Unknown]
  - Oesophageal fistula [Unknown]
  - Hypotension [Unknown]

NARRATIVE: CASE EVENT DATE: 201505
